FAERS Safety Report 8767933 (Version 1)
Quarter: 2012Q4

REPORT INFORMATION
  Report Type: 
  Country: GB (occurrence: GB)
  Receive Date: 20120905
  Receipt Date: 20120905
  Transmission Date: 20130627
  Serious: Yes (Disabling)
  Sender: FDA-Public Use
  Company Number: PHHY2012GB075300

PATIENT
  Age: 65 Year
  Sex: Male
  Weight: 76.7 kg

DRUGS (25)
  1. AZITHROMYCIN [Suspect]
  2. AMOXICILLIN [Concomitant]
     Dates: start: 20120528, end: 20120602
  3. AMOXICILLIN [Concomitant]
     Dates: start: 20120612, end: 20120617
  4. AMOXICILLIN [Concomitant]
     Dates: start: 20120626, end: 20120701
  5. AMOXICILLIN [Concomitant]
     Dates: start: 20120720, end: 20120725
  6. BUDESONIDE [Concomitant]
     Dates: start: 20120430, end: 20120730
  7. CO-CODAMOL [Concomitant]
     Dates: start: 20120509, end: 20120521
  8. CO-CODAMOL [Concomitant]
     Dates: start: 20120622, end: 20120704
  9. CO-FLUAMPICIL [Concomitant]
     Dates: start: 20120704, end: 20120709
  10. DIPROBASE [Concomitant]
     Dates: start: 20120521, end: 20120725
  11. FLUCLOXACILLIN [Concomitant]
     Dates: start: 20120622, end: 20120627
  12. FUROSEMIDE [Concomitant]
     Dates: start: 20120514, end: 20120821
  13. LANSOPRAZOLE [Concomitant]
     Dates: start: 20120622, end: 20120720
  14. LORAZEPAM [Concomitant]
     Dates: start: 20120627, end: 20120725
  15. PIROXICAM [Concomitant]
     Dates: start: 20120606, end: 20120607
  16. PIROXICAM [Concomitant]
     Dates: start: 20120622, end: 20120623
  17. PREDNISOLONE [Concomitant]
     Dates: start: 20120528, end: 20120602
  18. PREDNISOLONE [Concomitant]
     Dates: start: 20120611, end: 20120616
  19. PREDNISOLONE [Concomitant]
     Dates: start: 20120626, end: 20120701
  20. PREDNISOLONE [Concomitant]
     Dates: start: 20120720, end: 20120725
  21. SALBUTAMOL [Concomitant]
     Dates: start: 20120530, end: 20120604
  22. SALBUTAMOL [Concomitant]
     Dates: start: 20120703, end: 20120708
  23. SIMVASTATIN [Concomitant]
     Dates: start: 20120430, end: 20120730
  24. TIOTROPIUM [Concomitant]
     Dates: start: 20120430, end: 20120801
  25. VENTOLIN [Concomitant]
     Dates: start: 20120430, end: 20120730

REACTIONS (1)
  - Dyspnoea [Recovered/Resolved]
